FAERS Safety Report 7637214-3 (Version None)
Quarter: 2011Q3

REPORT INFORMATION
  Report Type: 
  Country: None (occurrence: None)
  Receive Date: 20110726
  Receipt Date: 20110713
  Transmission Date: 20111222
  Serious: Yes (Other)
  Sender: FDA-Public Use
  Company Number: PHHY2011DE61920

PATIENT
  Sex: Female

DRUGS (5)
  1. NEBIVOLOL [Concomitant]
     Indication: HYPERTENSION
     Route: 048
  2. AMLODIPINE BESYLATE [Concomitant]
     Indication: HYPERTENSION
     Route: 048
  3. GILENYA [Suspect]
     Dosage: 0.5 MG, QD
     Route: 048
     Dates: start: 20110624
  4. GILENYA [Suspect]
     Indication: MULTIPLE SCLEROSIS
     Dosage: 0.5 MG, QD
     Route: 048
     Dates: start: 20101101, end: 20110523
  5. MOXONIDINE [Concomitant]
     Indication: HYPERTENSION
     Route: 048

REACTIONS (5)
  - MULTIPLE SCLEROSIS RELAPSE [None]
  - BRADYCARDIA [None]
  - DIZZINESS [None]
  - DRUG EFFECT DECREASED [None]
  - PSORIATIC ARTHROPATHY [None]
